FAERS Safety Report 17826509 (Version 1)
Quarter: 2020Q2

REPORT INFORMATION
  Report Type: Spontaneous
  Country: US (occurrence: US)
  Receive Date: 20200526
  Receipt Date: 20200526
  Transmission Date: 20200714
  Serious: Yes (Hospitalization)
  Sender: FDA-Public Use
  Company Number: US-LUNDBECK-DKLU3016594

PATIENT
  Age: 2 Year
  Sex: Male
  Weight: 11 kg

DRUGS (6)
  1. SABRIL [Suspect]
     Active Substance: VIGABATRIN
     Indication: STATUS EPILEPTICUS
  2. SABRIL [Suspect]
     Active Substance: VIGABATRIN
     Indication: LENNOX-GASTAUT SYNDROME
  3. SABRIL [Suspect]
     Active Substance: VIGABATRIN
     Indication: MYELOID LEUKAEMIA
  4. EPIDIOLEX [Concomitant]
     Active Substance: CANNABIDIOL
     Indication: PRODUCT USED FOR UNKNOWN INDICATION
     Route: 065
  5. SABRIL [Suspect]
     Active Substance: VIGABATRIN
     Indication: EPILEPSY
     Route: 048
  6. SABRIL [Suspect]
     Active Substance: VIGABATRIN
     Indication: GENERALISED TONIC-CLONIC SEIZURE

REACTIONS (1)
  - Adverse drug reaction [Unknown]

NARRATIVE: CASE EVENT DATE: 202005
